FAERS Safety Report 26185909 (Version 1)
Quarter: 2025Q4

REPORT INFORMATION
  Report Type: Spontaneous
  Country: CA (occurrence: CA)
  Receive Date: 20251222
  Receipt Date: 20251222
  Transmission Date: 20260117
  Serious: Yes (Death, Life-Threatening, Hospitalization, Disabling, Congenital Anomaly, Other)
  Sender: Haleon PLC
  Company Number: CA-HALEON-2279909

PATIENT
  Age: 43 Year
  Sex: Female
  Weight: 70 kg

DRUGS (85)
  1. DICLOFENAC [Suspect]
     Active Substance: DICLOFENAC
     Indication: Product used for unknown indication
     Dosage: DOSE FORM: UNKNOWN?PATIENT ROA: UNKNOWN
  2. DICLOFENAC [Suspect]
     Active Substance: DICLOFENAC
     Dosage: PATIENT ROA: UNKNOWN
  3. DICLOFENAC [Suspect]
     Active Substance: DICLOFENAC
     Dosage: DOSE FORM: UNKNOWN?PATIENT ROA: UNKNOWN
  4. DICLOFENAC [Suspect]
     Active Substance: DICLOFENAC
     Dosage: DOSE FORM: UNKNOWN?PATIENT ROA: UNKNOWN
  5. DICLOFENAC [Suspect]
     Active Substance: DICLOFENAC
     Dosage: DOSE FORM: NOT SPECIFIED?PATIENT ROA: UNKNOWN
  6. DICLOFENAC [Suspect]
     Active Substance: DICLOFENAC
     Dosage: PATIENT ROA: UNKNOWN
  7. DICLOFENAC [Suspect]
     Active Substance: DICLOFENAC
     Dosage: PATIENT ROA: UNKNOWN
  8. DICLOFENAC [Suspect]
     Active Substance: DICLOFENAC
     Dosage: PATIENT ROA: UNKNOWN
  9. DICLOFENAC POTASSIUM [Suspect]
     Active Substance: DICLOFENAC POTASSIUM
     Indication: Rheumatoid arthritis
     Dosage: PATIENT ROA: UNKNOWN
  10. DICLOFENAC POTASSIUM [Suspect]
     Active Substance: DICLOFENAC POTASSIUM
  11. DICLOFENAC POTASSIUM [Suspect]
     Active Substance: DICLOFENAC POTASSIUM
     Dosage: PATIENT ROA: UNKNOWN
  12. DICLOFENAC POTASSIUM [Suspect]
     Active Substance: DICLOFENAC POTASSIUM
     Dosage: PATIENT ROA: UNKNOWN
  13. DICLOFENAC POTASSIUM [Suspect]
     Active Substance: DICLOFENAC POTASSIUM
     Dosage: PATIENT ROA: UNKNOWN
  14. DICLOFENAC POTASSIUM [Suspect]
     Active Substance: DICLOFENAC POTASSIUM
  15. DICLOFENAC POTASSIUM [Suspect]
     Active Substance: DICLOFENAC POTASSIUM
  16. VOLTAREN [Suspect]
     Active Substance: DICLOFENAC SODIUM
     Indication: Product used for unknown indication
     Dosage: PATIENT ROA: UNKNOWN
  17. VOLTAREN [Suspect]
     Active Substance: DICLOFENAC SODIUM
     Dosage: PATIENT ROA: UNKNOWN
  18. VOLTAREN [Suspect]
     Active Substance: DICLOFENAC SODIUM
     Dosage: PATIENT ROA: UNKNOWN
  19. DICLOFENAC POTASSIUM [Suspect]
     Active Substance: DICLOFENAC POTASSIUM
     Indication: Rheumatoid arthritis
     Dosage: DOSE FORM: UNKNOWN?PATIENT ROA: UNKNOWN
  20. DICLOFENAC POTASSIUM [Suspect]
     Active Substance: DICLOFENAC POTASSIUM
     Dosage: DOSE FORM: UNKNOWN?PATIENT ROA: UNKNOWN
  21. DICLOFENAC POTASSIUM [Suspect]
     Active Substance: DICLOFENAC POTASSIUM
     Dosage: DOSE FORM: UNKNOWN
  22. DICLOFENAC POTASSIUM [Suspect]
     Active Substance: DICLOFENAC POTASSIUM
     Dosage: DOSE FORM: UNKNOWN?PATIENT ROA: UNKNOWN
  23. DICLOFENAC POTASSIUM [Suspect]
     Active Substance: DICLOFENAC POTASSIUM
     Dosage: DOSE FORM: UNKNOWN?PATIENT ROA: UNKNOWN
  24. DICLOFENAC POTASSIUM [Suspect]
     Active Substance: DICLOFENAC POTASSIUM
     Dosage: DOSE FORM: UNKNOWN
  25. DICLOFENAC POTASSIUM [Suspect]
     Active Substance: DICLOFENAC POTASSIUM
     Dosage: DOSE FORM: UNKNOWN?PATIENT ROA: UNKNOWN
  26. DICLOFENAC POTASSIUM [Suspect]
     Active Substance: DICLOFENAC POTASSIUM
     Dosage: DOSE FORM: UNKNOWN?PATIENT ROA: UNKNOWN
  27. DICLOFENAC POTASSIUM [Suspect]
     Active Substance: DICLOFENAC POTASSIUM
     Dosage: DOSE FORM: UNKNOWN
  28. DICLOFENAC POTASSIUM [Suspect]
     Active Substance: DICLOFENAC POTASSIUM
     Dosage: DOSE FORM: UNKNOWN?PATIENT ROA: UNKNOWN
  29. DICLOFENAC POTASSIUM [Suspect]
     Active Substance: DICLOFENAC POTASSIUM
     Dosage: DOSE FORM: UNKNOWN
  30. DICLOFENAC POTASSIUM [Suspect]
     Active Substance: DICLOFENAC POTASSIUM
     Dosage: DOSE FORM: UNKNOWN?PATIENT ROA: UNKNOWN
  31. DICLOFENAC POTASSIUM [Suspect]
     Active Substance: DICLOFENAC POTASSIUM
     Dosage: DOSE FORM: UNKNOWN?PATIENT ROA: UNKNOWN
  32. DICLOFENAC POTASSIUM [Suspect]
     Active Substance: DICLOFENAC POTASSIUM
     Dosage: DOSE FORM: UNKNOWN?PATIENT ROA: UNKNOWN
  33. DICLOFENAC POTASSIUM [Suspect]
     Active Substance: DICLOFENAC POTASSIUM
     Dosage: DOSE FORM: UNKNOWN?PATIENT ROA: UNKNOWN
  34. ERELZI [Suspect]
     Active Substance: ETANERCEPT-SZZS
     Indication: Rheumatoid arthritis
  35. ERELZI [Suspect]
     Active Substance: ETANERCEPT-SZZS
  36. ERELZI [Suspect]
     Active Substance: ETANERCEPT-SZZS
     Dosage: PATIENT ROA: UNKNOWN
  37. HYRIMOZ [Suspect]
     Active Substance: ADALIMUMAB-ADAZ
     Indication: Rheumatoid arthritis
     Dosage: DOSE FORM: SOLUTION FOR INJECTION
  38. HYRIMOZ [Suspect]
     Active Substance: ADALIMUMAB-ADAZ
     Indication: Psoriatic arthropathy
     Dosage: DOSE FORM: SOLUTION FOR INJECTION
  39. HYRIMOZ [Suspect]
     Active Substance: ADALIMUMAB-ADAZ
     Dosage: DOSE FORM: SOLUTION FOR INJECTION
  40. HYRIMOZ [Suspect]
     Active Substance: ADALIMUMAB-ADAZ
     Dosage: DOSE FORM: SOLUTION FOR INJECTION
  41. HYRIMOZ [Suspect]
     Active Substance: ADALIMUMAB-ADAZ
     Dosage: DOSE FORM: SOLUTION FOR INJECTION
  42. OXYCODONE [Suspect]
     Active Substance: OXYCODONE
     Indication: Product used for unknown indication
     Dosage: DOSE FORM: NOT SPECIFIED?PATIENT ROA: UNKNOWN
  43. OXYCODONE [Suspect]
     Active Substance: OXYCODONE
     Indication: Product used for unknown indication
     Dosage: PATIENT ROA: UNKNOWN
  44. OXYCODONE [Suspect]
     Active Substance: OXYCODONE
     Dosage: PATIENT ROA: INTRAVENOUS (NOT OTHERWISE SPECIFIED)
  45. QUETIAPINE FUMARATE [Suspect]
     Active Substance: QUETIAPINE FUMARATE
     Indication: Product used for unknown indication
     Dosage: PATIENT ROA: UNKNOWN
  46. ALENDRONATE SODIUM [Suspect]
     Active Substance: ALENDRONATE SODIUM
     Indication: Rheumatoid arthritis
     Dosage: DOSE FORM: UNKNOWN?PATIENT ROA: UNKNOWN
  47. ALENDRONATE SODIUM [Suspect]
     Active Substance: ALENDRONATE SODIUM
     Dosage: DOSE FORM: UNKNOWN
  48. ALENDRONATE SODIUM [Suspect]
     Active Substance: ALENDRONATE SODIUM
     Dosage: DOSE FORM: UNKNOWN
  49. ALENDRONATE SODIUM [Suspect]
     Active Substance: ALENDRONATE SODIUM
     Dosage: DOSE FORM: UNKNOWN?PATIENT ROA: UNKNOWN
  50. ALENDRONATE SODIUM [Suspect]
     Active Substance: ALENDRONATE SODIUM
     Dosage: DOSE FORM: UNKNOWN
  51. ALENDRONATE SODIUM [Suspect]
     Active Substance: ALENDRONATE SODIUM
     Dosage: DOSE FORM: UNKNOWN
  52. ALENDRONATE SODIUM [Suspect]
     Active Substance: ALENDRONATE SODIUM
     Dosage: DOSE FORM: UNKNOWN
  53. DICLOFENAC SODIUM [Suspect]
     Active Substance: DICLOFENAC SODIUM
     Indication: Rheumatoid arthritis
  54. LEFLUNOMIDE [Suspect]
     Active Substance: LEFLUNOMIDE
     Indication: Rheumatoid arthritis
  55. LEFLUNOMIDE [Suspect]
     Active Substance: LEFLUNOMIDE
     Dosage: PATIENT ROA: UNKNOWN
  56. LEFLUNOMIDE [Suspect]
     Active Substance: LEFLUNOMIDE
     Dosage: PATIENT ROA: UNKNOWN
  57. LEFLUNOMIDE [Suspect]
     Active Substance: LEFLUNOMIDE
  58. LEFLUNOMIDE [Suspect]
     Active Substance: LEFLUNOMIDE
  59. LEFLUNOMIDE [Suspect]
     Active Substance: LEFLUNOMIDE
  60. MYCOPHENOLATE MOFETIL [Suspect]
     Active Substance: MYCOPHENOLATE MOFETIL
     Indication: Rheumatoid arthritis
     Dosage: DOSE FORM: UNKNOWN?PATIENT ROA: UNKNOWN
  61. COSENTYX [Suspect]
     Active Substance: SECUKINUMAB
     Indication: Rheumatoid arthritis
     Dosage: PATIENT ROA: UNKNOWN
  62. COSENTYX [Suspect]
     Active Substance: SECUKINUMAB
     Indication: Psoriatic arthropathy
     Dosage: PATIENT ROA: UNKNOWN
  63. COSENTYX [Suspect]
     Active Substance: SECUKINUMAB
     Dosage: PATIENT ROA: UNKNOWN
  64. COSENTYX [Suspect]
     Active Substance: SECUKINUMAB
     Dosage: PATIENT ROA: UNKNOWN
  65. ERENUMAB-AOOE [Suspect]
     Active Substance: ERENUMAB-AOOE
     Indication: Migraine
     Dosage: PATIENT ROA: UNKNOWN
  66. ERENUMAB-AOOE [Suspect]
     Active Substance: ERENUMAB-AOOE
  67. CALCIUM\CHOLECALCIFEROL [Suspect]
     Active Substance: CALCIUM\CHOLECALCIFEROL
     Indication: Product used for unknown indication
     Dosage: PATIENT ROA: UNKNOWN
  68. HYRIMOZ [Suspect]
     Active Substance: ADALIMUMAB-ADAZ
     Indication: Rheumatoid arthritis
     Dosage: DOSE FORM: SOLUTION SUBCUTANEOUS
  69. HYRIMOZ [Suspect]
     Active Substance: ADALIMUMAB-ADAZ
     Indication: Psoriatic arthropathy
  70. QUETIAPINE FUMARATE [Suspect]
     Active Substance: QUETIAPINE FUMARATE
     Indication: Product used for unknown indication
  71. RITUXIMAB [Suspect]
     Active Substance: RITUXIMAB
     Indication: Rheumatoid arthritis
     Dosage: PATIENT ROA: INTRAVENOUS (NOT OTHERWISE SPECIFIED)
  72. RITUXIMAB [Suspect]
     Active Substance: RITUXIMAB
     Dosage: DOSE FORM: UNKNOWN?PATIENT ROA: INTRAVENOUS (NOT OTHERWISE SPECIFIED)
  73. RITUXIMAB [Suspect]
     Active Substance: RITUXIMAB
     Dosage: DOSE FORM: UNKNOWN?PATIENT ROA: INTRAVENOUS (NOT OTHERWISE SPECIFIED)
  74. RITUXIMAB [Suspect]
     Active Substance: RITUXIMAB
     Dosage: DOSE FORM: UNKNOWN
  75. RITUXIMAB [Suspect]
     Active Substance: RITUXIMAB
     Dosage: DOSE FORM: UNKNOWN
  76. RITUXIMAB [Suspect]
     Active Substance: RITUXIMAB
     Dosage: DOSE FORM: UNKNOWN?PATIENT ROA: UNKNOWN
  77. RITUXIMAB [Suspect]
     Active Substance: RITUXIMAB
     Dosage: DOSE FORM: UNKNOWN
  78. RITUXIMAB [Suspect]
     Active Substance: RITUXIMAB
     Dosage: DOSE FORM: UNKNOWN?PATIENT ROA: UNKNOWN
  79. RITUXIMAB [Suspect]
     Active Substance: RITUXIMAB
     Dosage: DOSE FORM: UNKNOWN?PATIENT ROA: INTRAVENOUS (NOT OTHERWISE SPECIFIED)
  80. ALENDRONATE SODIUM [Suspect]
     Active Substance: ALENDRONATE SODIUM
     Indication: Rheumatoid arthritis
  81. ALENDRONATE SODIUM [Suspect]
     Active Substance: ALENDRONATE SODIUM
  82. MYCOPHENOLATE MOFETIL [Suspect]
     Active Substance: MYCOPHENOLATE MOFETIL
     Indication: Rheumatoid arthritis
     Dosage: PATIENT ROA: UNKNOWN
  83. ERELZI [Suspect]
     Active Substance: ETANERCEPT-SZZS
     Indication: Rheumatoid arthritis
     Dosage: DOSE FORM: NOT SPECIFIED
  84. ERELZI [Suspect]
     Active Substance: ETANERCEPT-SZZS
     Dosage: DOSE FORM: UNKNOWN?PATIENT ROA: UNKNOWN
  85. VOLTAREN [Suspect]
     Active Substance: DICLOFENAC SODIUM
     Indication: Product used for unknown indication
     Dosage: DOSE FORM: NOT SPECIFIED?PATIENT ROA: OPHTHALMIC

REACTIONS (24)
  - Pulmonary fibrosis [Fatal]
  - Intentional product use issue [Fatal]
  - Off label use [Fatal]
  - Osteoarthritis [Fatal]
  - Osteoporosis [Fatal]
  - Pain [Fatal]
  - Pain in extremity [Fatal]
  - Pemphigus [Fatal]
  - Pericarditis [Fatal]
  - Peripheral swelling [Fatal]
  - Pneumonia [Fatal]
  - Prescribed overdose [Fatal]
  - Prescribed underdose [Fatal]
  - Pruritus [Fatal]
  - Pyrexia [Fatal]
  - Retinitis [Fatal]
  - Rheumatic fever [Fatal]
  - Oedema peripheral [Fatal]
  - Product use in unapproved indication [Fatal]
  - Product use issue [Fatal]
  - Psoriasis [Fatal]
  - Psoriatic arthropathy [Fatal]
  - Rash [Fatal]
  - Red blood cell sedimentation rate increased [Fatal]
